FAERS Safety Report 5015757-9 (Version None)
Quarter: 2006Q2

REPORT INFORMATION
  Report Type: 
  Country: None (occurrence: None)
  Receive Date: 20060525
  Receipt Date: 20060509
  Transmission Date: 20061013
  Serious: Yes (Death, Hospitalization)
  Sender: FDA-Public Use
  Company Number: GB200604000164

PATIENT
  Age: 49 Year

DRUGS (3)
  1. ZYPREXA [Suspect]
     Indication: DEPRESSION
     Dosage: SEE IMAGE
     Route: 048
     Dates: start: 20050401
  2. MIRTAZAPINE [Concomitant]
  3. CHLORPROMAZINE [Concomitant]

REACTIONS (1)
  - CEREBROVASCULAR ACCIDENT [None]
